FAERS Safety Report 12765328 (Version 6)
Quarter: 2016Q4

REPORT INFORMATION
  Report Type: Spontaneous
  Country: US (occurrence: US)
  Receive Date: 20160921
  Receipt Date: 20161208
  Transmission Date: 20170207
  Serious: Yes (Other)
  Sender: FDA-Public Use
  Company Number: US-PFIZER INC-2016438410

PATIENT
  Age: 66 Year
  Sex: Male
  Weight: 98.41 kg

DRUGS (7)
  1. SUTENT [Suspect]
     Active Substance: SUNITINIB MALATE
     Dosage: 12.5 MG, UNK
  2. LISINOPRIL HCTZ [Concomitant]
     Active Substance: HYDROCHLOROTHIAZIDE\LISINOPRIL
     Dosage: UNK
  3. SUTENT [Suspect]
     Active Substance: SUNITINIB MALATE
     Indication: METASTATIC RENAL CELL CARCINOMA
     Dosage: 50 MG, CYCLIC [28 DAYS ON/14 DAYS OFF]
     Route: 048
     Dates: start: 20160829
  4. SUTENT [Suspect]
     Active Substance: SUNITINIB MALATE
     Dosage: 37.5 MG, CYCLIC (37.5MG DAILY 28 DAYS ON/14 DAYS OFF)
     Dates: start: 20160830
  5. SULINDAC. [Concomitant]
     Active Substance: SULINDAC
     Dosage: UNK, AS NEEDED
  6. TYLENOL [Concomitant]
     Active Substance: ACETAMINOPHEN
     Dosage: UNK
  7. SUTENT [Suspect]
     Active Substance: SUNITINIB MALATE
     Dosage: 25 MG, UNK

REACTIONS (10)
  - Diarrhoea [Not Recovered/Not Resolved]
  - Alopecia [Recovered/Resolved]
  - Thrombocytopenia [Recovering/Resolving]
  - Rash [Recovered/Resolved]
  - Paraesthesia [Recovering/Resolving]
  - Oral discomfort [Unknown]
  - Hair colour changes [Unknown]
  - Dysgeusia [Recovered/Resolved]
  - Blood phosphorus decreased [Recovered/Resolved]
  - Oral pain [Not Recovered/Not Resolved]

NARRATIVE: CASE EVENT DATE: 20160910
